FAERS Safety Report 7789496-5 (Version None)
Quarter: 2011Q3

REPORT INFORMATION
  Report Type: 
  Country: None (occurrence: None)
  Receive Date: 20110930
  Receipt Date: 20110921
  Transmission Date: 20111222
  Serious: Yes (Hospitalization)
  Sender: FDA-Public Use
  Company Number: US-JNJFOC-20110909926

PATIENT
  Sex: Male
  Weight: 75.75 kg

DRUGS (1)
  1. REMICADE [Suspect]
     Indication: RHEUMATOID ARTHRITIS
     Dosage: 3 VIALS
     Route: 042
     Dates: start: 20090101

REACTIONS (6)
  - HEAD DISCOMFORT [None]
  - RASH [None]
  - HYPERTENSION [None]
  - ARTERIAL DISORDER [None]
  - NAUSEA [None]
  - ASTHENIA [None]
